FAERS Safety Report 12672941 (Version 1)
Quarter: 2016Q3

REPORT INFORMATION
  Report Type: Spontaneous
  Country: US (occurrence: US)
  Receive Date: 20160822
  Receipt Date: 20160822
  Transmission Date: 20161109
  Serious: Yes (Other)
  Sender: FDA-Public Use
  Company Number: US-CELGENEUS-USA-2016080927

PATIENT
  Sex: Female
  Weight: 64.83 kg

DRUGS (2)
  1. REVLIMID [Suspect]
     Active Substance: LENALIDOMIDE
     Indication: PLASMA CELL MYELOMA
     Route: 048
     Dates: start: 201211
  2. REVLIMID [Suspect]
     Active Substance: LENALIDOMIDE
     Route: 048
     Dates: start: 20160413

REACTIONS (5)
  - Feeling abnormal [Unknown]
  - Constipation [Unknown]
  - Nausea [Not Recovered/Not Resolved]
  - Platelet count decreased [Unknown]
  - Fatigue [Not Recovered/Not Resolved]
